FAERS Safety Report 6228171-5 (Version None)
Quarter: 2009Q2

REPORT INFORMATION
  Report Type: 
  Country: None (occurrence: None)
  Receive Date: 20090612
  Receipt Date: 20090603
  Transmission Date: 20091009
  Serious: Yes (Other)
  Sender: FDA-Public Use
  Company Number: JP-BRISTOL-MYERS SQUIBB COMPANY-14661284

PATIENT
  Age: 19 Year
  Sex: Male

DRUGS (2)
  1. EFAVIRENZ TABS [Suspect]
     Route: 048
     Dates: start: 20090201, end: 20090406
  2. TRUVADA [Suspect]
     Dosage: INTERRUPTED ON 06-APR-2009
     Dates: start: 20090201

REACTIONS (1)
  - AGRANULOCYTOSIS [None]
